FAERS Safety Report 14985302 (Version 1)
Quarter: 2018Q2

REPORT INFORMATION
  Report Type: Spontaneous
  Country: US (occurrence: US)
  Receive Date: 20180518
  Receipt Date: 20180518
  Transmission Date: 20180711
  Serious: No
  Sender: FDA-Public Use
  Company Number: None

PATIENT
  Age: 67 Year
  Sex: Female

DRUGS (21)
  1. CELECOXIB. [Concomitant]
     Active Substance: CELECOXIB
  2. AZATHOPRINE [Concomitant]
     Active Substance: AZATHIOPRINE
  3. DILTIAZEM. [Concomitant]
     Active Substance: DILTIAZEM
  4. MELOXICAM. [Concomitant]
     Active Substance: MELOXICAM
  5. CICYCLOMINE [Concomitant]
  6. OCALIVA [Suspect]
     Active Substance: OBETICHOLIC ACID
     Indication: HYPERTENSION
     Route: 048
  7. URSODIOL. [Concomitant]
     Active Substance: URSODIOL
  8. ESCITALOPRAM [Concomitant]
     Active Substance: ESCITALOPRAM OXALATE
  9. ROSUVASTATIN. [Concomitant]
     Active Substance: ROSUVASTATIN
  10. ESTRADIOL. [Concomitant]
     Active Substance: ESTRADIOL
  11. HYOSCYAMINE. [Concomitant]
     Active Substance: HYOSCYAMINE
  12. OXYCOD APAP [Concomitant]
  13. ONDANSETRON [Concomitant]
     Active Substance: ONDANSETRON
  14. RANITIDINE. [Concomitant]
     Active Substance: RANITIDINE
  15. SIMVASTATIN. [Concomitant]
     Active Substance: SIMVASTATIN
  16. HYDROXYZ HCL [Concomitant]
     Active Substance: HYDROXYZINE HYDROCHLORIDE
  17. FLUOXETINE [Concomitant]
     Active Substance: FLUOXETINE HYDROCHLORIDE
  18. VOLTAREN [Concomitant]
     Active Substance: DICLOFENAC SODIUM
  19. NAPROXEN. [Concomitant]
     Active Substance: NAPROXEN
  20. TRAMADOL. [Concomitant]
     Active Substance: TRAMADOL
  21. PREDNISONE. [Concomitant]
     Active Substance: PREDNISONE

REACTIONS (2)
  - Aspartate aminotransferase increased [None]
  - Blood alkaline phosphatase increased [None]

NARRATIVE: CASE EVENT DATE: 20180515
